FAERS Safety Report 7351706-6 (Version None)
Quarter: 2011Q1

REPORT INFORMATION
  Report Type: 
  Country: None (occurrence: None)
  Receive Date: 20110315
  Receipt Date: 20081001
  Transmission Date: 20110831
  Serious: No
  Sender: FDA-Public Use
  Company Number: 2008BI025898

PATIENT
  Sex: Female

DRUGS (3)
  1. PREDNISONE [Concomitant]
     Indication: PREMEDICATION
     Dates: start: 20100101
  2. TYSABRI [Suspect]
     Indication: MULTIPLE SCLEROSIS
     Route: 042
     Dates: start: 20080918
  3. BENADRYL [Concomitant]
     Indication: PREMEDICATION
     Dates: start: 20100101

REACTIONS (5)
  - SINUS DISORDER [None]
  - PRURITUS [None]
  - HEADACHE [None]
  - FATIGUE [None]
  - URTICARIA [None]
